FAERS Safety Report 11226088 (Version 2)
Quarter: 2015Q3

REPORT INFORMATION
  Report Type: Report from Study
  Country: US (occurrence: US)
  Receive Date: 20150629
  Receipt Date: 20150710
  Transmission Date: 20151125
  Serious: Yes (Life-Threatening, Hospitalization, Other)
  Sender: FDA-Public Use
  Company Number: US-ACTELION-A-US2015-119889

PATIENT
  Age: 71 Year
  Sex: Female

DRUGS (1)
  1. TRACLEER [Suspect]
     Active Substance: BOSENTAN
     Indication: PULMONARY ARTERIAL HYPERTENSION
     Dosage: UNK, BID
     Route: 048
     Dates: start: 20120123

REACTIONS (6)
  - Gastrointestinal haemorrhage [Unknown]
  - Anaemia [Unknown]
  - Localised intraabdominal fluid collection [Recovering/Resolving]
  - Transfusion [Unknown]
  - Chronic kidney disease [Unknown]
  - Abdominal pain [Unknown]

NARRATIVE: CASE EVENT DATE: 20150605
